FAERS Safety Report 8481247-4 (Version None)
Quarter: 2012Q3

REPORT INFORMATION
  Report Type: 
  Country: None (occurrence: None)
  Receive Date: 20120702
  Receipt Date: 20120622
  Transmission Date: 20120928
  Serious: Yes (Other)
  Sender: FDA-Public Use
  Company Number: CA-JNJFOC-20120605993

PATIENT
  Sex: Female
  Weight: 71 kg

DRUGS (12)
  1. ZANTAC [Concomitant]
     Route: 065
  2. MAXERAN [Concomitant]
     Route: 065
  3. ACIDOPHILUS [Concomitant]
     Route: 065
  4. VITAMIN B-12 [Concomitant]
     Route: 065
  5. REMICADE [Suspect]
     Route: 042
     Dates: start: 20120301
  6. PRISTIQ [Concomitant]
     Route: 065
  7. VITAMIN D [Concomitant]
     Route: 065
  8. ALL OTHER THERAPEUTICS [Concomitant]
     Route: 065
  9. REMICADE [Suspect]
     Indication: CROHN'S DISEASE
     Route: 042
     Dates: end: 20120620
  10. REMICADE [Suspect]
     Route: 042
     Dates: start: 20120611
  11. MS CONTIN [Concomitant]
     Route: 065
  12. NEXIUM [Concomitant]
     Route: 065

REACTIONS (9)
  - INFUSION RELATED REACTION [None]
  - ERYTHEMA [None]
  - OXYGEN SATURATION DECREASED [None]
  - OEDEMA PERIPHERAL [None]
  - DIZZINESS [None]
  - DYSPNOEA [None]
  - ADVERSE DRUG REACTION [None]
  - PYREXIA [None]
  - PHARYNGEAL OEDEMA [None]
